FAERS Safety Report 9684802 (Version 2)
Quarter: 2013Q4

REPORT INFORMATION
  Report Type: Spontaneous
  Country: JP (occurrence: JP)
  Receive Date: 20131112
  Receipt Date: 20131112
  Transmission Date: 20140711
  Serious: Yes (Other)
  Sender: FDA-Public Use
  Company Number: PHHY2013JP056578

PATIENT
  Age: 71 Year
  Sex: Female
  Weight: 44 kg

DRUGS (7)
  1. NEORAL [Suspect]
     Indication: PEMPHIGOID
     Dosage: 150 MG, DAILY
     Route: 048
     Dates: start: 20130404
  2. NEORAL [Suspect]
     Dosage: 125 MG, QD
     Dates: start: 20130601
  3. BAKTAR [Suspect]
     Indication: OPPORTUNISTIC INFECTION
     Dosage: 6 DF, UNK
     Route: 048
     Dates: start: 20130524, end: 20130605
  4. PREDONINE [Concomitant]
     Indication: PEMPHIGOID
     Dosage: 60 MG
  5. EDIROL [Concomitant]
     Dosage: 0.75 UG, UNK
     Route: 048
     Dates: start: 20130408
  6. TAKEPRON [Concomitant]
     Dosage: 15 MG, UNK
     Route: 048
     Dates: start: 20130401, end: 20130722
  7. CEFAMEZIN ALPHA [Concomitant]
     Dosage: 2 G, UNK
     Route: 042
     Dates: start: 20130603, end: 20130610

REACTIONS (15)
  - Drug eruption [Recovering/Resolving]
  - Renal impairment [Unknown]
  - Blood urea increased [Not Recovered/Not Resolved]
  - Erythema [Unknown]
  - Blood sodium decreased [Not Recovered/Not Resolved]
  - Neutrophil count increased [Not Recovered/Not Resolved]
  - Lymphocyte count decreased [Not Recovered/Not Resolved]
  - Monocyte count decreased [Recovered/Resolved]
  - Alanine aminotransferase increased [Recovered/Resolved]
  - White blood cell count increased [Unknown]
  - Blood lactate dehydrogenase increased [Unknown]
  - Haemoglobin decreased [Not Recovered/Not Resolved]
  - Haematocrit decreased [Not Recovered/Not Resolved]
  - Platelet count decreased [Not Recovered/Not Resolved]
  - Aspartate aminotransferase decreased [Not Recovered/Not Resolved]
